FAERS Safety Report 5457004-X (Version None)
Quarter: 2007Q3

REPORT INFORMATION
  Report Type: 
  Country: None (occurrence: None)
  Receive Date: 20070918
  Receipt Date: 20070228
  Transmission Date: 20080115
  Serious: Yes (Disabling)
  Sender: FDA-Public Use
  Company Number: US-ASTRAZENECA-2006UW27683

PATIENT
  Age: 11529 Day
  Sex: Female
  Weight: 95.5 kg

DRUGS (5)
  1. SEROQUEL [Suspect]
     Indication: DEPRESSION
     Route: 048
     Dates: start: 20041104, end: 20050602
  2. SEROQUEL [Suspect]
     Route: 048
     Dates: start: 20050602, end: 20060801
  3. SEROQUEL [Suspect]
     Dosage: 100-200MG
     Route: 048
     Dates: start: 20060301
  4. GEODON [Concomitant]
     Dosage: 40MG-60MG
     Dates: start: 20050504, end: 20060317
  5. OTHER PSYCHIATRIC MEDICATION [Concomitant]

REACTIONS (1)
  - TYPE 2 DIABETES MELLITUS [None]
